FAERS Safety Report 4270868-0 (Version None)
Quarter: 2004Q1

REPORT INFORMATION
  Report Type: 
  Country: None (occurrence: None)
  Receive Date: 20040114
  Receipt Date: 20040105
  Transmission Date: 20041129
  Serious: Yes (Hospitalization, Other)
  Sender: FDA-Public Use
  Company Number: PHBS2004JP00506

PATIENT
  Age: 40 Year
  Sex: Male

DRUGS (3)
  1. CYCLOSPORINE [Suspect]
     Indication: RENAL TRANSPLANT
     Route: 065
     Dates: start: 19971201
  2. MYCOPHENOLATE MOFETIL [Suspect]
     Indication: RENAL TRANSPLANT
     Route: 065
     Dates: start: 19971201
  3. METHYLPREDNISOLONE [Suspect]
     Dates: start: 19971201

REACTIONS (6)
  - BIOPSY BONE MARROW ABNORMAL [None]
  - ERYTHEMA INFECTIOSUM [None]
  - ERYTHROID MATURATION ARREST [None]
  - HAEMATOCRIT DECREASED [None]
  - KIDNEY TRANSPLANT REJECTION [None]
  - RETICULOCYTE COUNT DECREASED [None]
